FAERS Safety Report 8267163-1 (Version None)
Quarter: 2012Q2

REPORT INFORMATION
  Report Type: 
  Country: None (occurrence: None)
  Receive Date: 20120409
  Receipt Date: 20120326
  Transmission Date: 20120825
  Serious: Yes (Other)
  Sender: FDA-Public Use
  Company Number: US-JNJFOC-20120402980

PATIENT
  Age: 42 Year

DRUGS (2)
  1. LEVAQUIN [Suspect]
     Indication: BRONCHITIS
     Route: 065
     Dates: start: 20080204
  2. LYRICA [Suspect]
     Indication: PRODUCT USED FOR UNKNOWN INDICATION
     Route: 065

REACTIONS (4)
  - ARTHRALGIA [None]
  - MUSCLE SPASMS [None]
  - ARTHROPATHY [None]
  - MIGRAINE [None]
